FAERS Safety Report 5526434-X (Version None)
Quarter: 2007Q4

REPORT INFORMATION
  Report Type: 
  Country: None (occurrence: None)
  Receive Date: 20071127
  Receipt Date: 20071116
  Transmission Date: 20080405
  Serious: Yes (Other)
  Sender: FDA-Public Use
  Company Number: GB-AVENTIS-200715471EU

PATIENT
  Age: 45 Year
  Sex: Female
  Weight: 121 kg

DRUGS (4)
  1. GAVISCON [Suspect]
     Route: 048
     Dates: start: 20070901, end: 20070901
  2. LOSARTAN POTASSIUM [Concomitant]
     Dosage: DOSE: UNK
     Dates: start: 20070701
  3. TELFAST                            /01314201/ [Concomitant]
     Dosage: DOSE: UNK
     Dates: start: 20070701
  4. VESICARE                           /01735901/ [Concomitant]
     Dosage: DOSE: UNK

REACTIONS (2)
  - ANGIOEDEMA [None]
  - REACTION TO DRUG EXCIPIENTS [None]
